FAERS Safety Report 5003491-0 (Version None)
Quarter: 2006Q2

REPORT INFORMATION
  Report Type: 
  Country: None (occurrence: None)
  Receive Date: 20060516
  Receipt Date: 20060427
  Transmission Date: 20061013
  Serious: Yes (Other)
  Sender: FDA-Public Use
  Company Number: JP-BOEHRINGER INGELHEIM PHARMACEUTICALS, INC.-2006-BP-04848YA

PATIENT
  Age: 74 Year
  Sex: Male

DRUGS (1)
  1. HARNAL [Suspect]
     Route: 048
     Dates: start: 20041201, end: 20050301

REACTIONS (1)
  - NEUROLEPTIC MALIGNANT SYNDROME [None]
